FAERS Safety Report 13815866 (Version 2)
Quarter: 2017Q3

REPORT INFORMATION
  Report Type: Report from Study
  Country: US (occurrence: US)
  Receive Date: 20170731
  Receipt Date: 20170802
  Transmission Date: 20171127
  Serious: Yes (Other)
  Sender: FDA-Public Use
  Company Number: US-JNJFOC-20170719696

PATIENT
  Age: 60 Year
  Sex: Male
  Weight: 94.35 kg

DRUGS (1)
  1. USTEKINUMAB [Suspect]
     Active Substance: USTEKINUMAB
     Indication: PSORIASIS
     Route: 058
     Dates: start: 201206

REACTIONS (1)
  - Monoclonal gammopathy [Unknown]

NARRATIVE: CASE EVENT DATE: 20130109
